FAERS Safety Report 18465529 (Version 1)
Quarter: 2020Q4

REPORT INFORMATION
  Report Type: Spontaneous
  Country: US (occurrence: US)
  Receive Date: 20201105
  Receipt Date: 20201105
  Transmission Date: 20210114
  Serious: No
  Sender: FDA-Public Use
  Company Number: US-SA-2020SA308405

PATIENT

DRUGS (3)
  1. AZELASTINE. [Concomitant]
     Active Substance: AZELASTINE HYDROCHLORIDE
  2. NASACORT ALLERGY 24HR [Suspect]
     Active Substance: TRIAMCINOLONE ACETONIDE
  3. AZASITE [Concomitant]
     Active Substance: AZITHROMYCIN MONOHYDRATE

REACTIONS (5)
  - Dizziness [Unknown]
  - Dry eye [Unknown]
  - Feeling abnormal [Unknown]
  - Nightmare [Unknown]
  - Swelling of eyelid [Unknown]
